FAERS Safety Report 18765977 (Version 1)
Quarter: 2021Q1

REPORT INFORMATION
  Report Type: Spontaneous
  Country: DE (occurrence: DE)
  Receive Date: 20210120
  Receipt Date: 20210120
  Transmission Date: 20210419
  Serious: Yes (Hospitalization, Other)
  Sender: FDA-Public Use
  Company Number: DE-BRISTOL-MYERS SQUIBB COMPANY-BMS-2021-004775

PATIENT
  Age: 52 Year
  Sex: Female

DRUGS (2)
  1. NIVOLUMAB [Suspect]
     Active Substance: NIVOLUMAB
     Indication: MALIGNANT MELANOMA
     Dosage: 1 MG/KG (4 CYCLES)
     Route: 065
  2. IPILIMUMAB [Suspect]
     Active Substance: IPILIMUMAB
     Indication: MALIGNANT MELANOMA
     Dosage: 3 MG/KG (4 CYCLES)
     Route: 065

REACTIONS (6)
  - Granulomatous liver disease [Unknown]
  - Immune-mediated enterocolitis [Unknown]
  - Subacute hepatic failure [Unknown]
  - Gastritis [Unknown]
  - Immune-mediated cholangitis [Unknown]
  - Immune-mediated pancreatitis [Unknown]
